FAERS Safety Report 14544638 (Version 1)
Quarter: 2018Q1

REPORT INFORMATION
  Report Type: Spontaneous
  Country: US (occurrence: US)
  Receive Date: 20180217
  Receipt Date: 20180217
  Transmission Date: 20180509
  Serious: No
  Sender: FDA-Public Use
  Company Number: US-TEVA-2018-US-851335

PATIENT
  Sex: Female

DRUGS (1)
  1. TRAMADOL. [Suspect]
     Active Substance: TRAMADOL
     Indication: PAIN
     Route: 065
     Dates: start: 20180112, end: 20180116

REACTIONS (7)
  - Nausea [Unknown]
  - Malaise [Unknown]
  - Dry mouth [Unknown]
  - Drug ineffective [Unknown]
  - Fatigue [Unknown]
  - Gastrointestinal disorder [Unknown]
  - Dizziness [Unknown]

NARRATIVE: CASE EVENT DATE: 20180112
